FAERS Safety Report 7041204-1 (Version None)
Quarter: 2010Q4

REPORT INFORMATION
  Report Type: 
  Country: None (occurrence: None)
  Receive Date: 20101013
  Receipt Date: 20101005
  Transmission Date: 20110411
  Serious: Yes (Other)
  Sender: FDA-Public Use
  Company Number: FR-BRISTOL-MYERS SQUIBB COMPANY-15116643

PATIENT
  Age: 62 Year
  Sex: Male

DRUGS (9)
  1. GLUCOPHAGE [Suspect]
     Indication: TYPE 2 DIABETES MELLITUS
     Route: 048
     Dates: start: 20100222, end: 20100603
  2. ALCOHOL [Suspect]
  3. EXFORGE [Concomitant]
     Indication: HYPERTENSION
     Dosage: STARTED SEVERAL YRS AGO-ONG.
  4. SKENAN [Concomitant]
     Indication: BACK PAIN
     Dosage: STARTED SEVERAL YRS AGO-ONG.
  5. SKENAN [Concomitant]
     Indication: JOINT PROSTHESIS USER
     Dosage: STARTED SEVERAL YRS AGO-ONG.
  6. SKENAN [Concomitant]
     Dosage: STARTED SEVERAL YRS AGO-ONG.
  7. MORPHINE [Concomitant]
     Indication: BACK PAIN
     Dosage: STARTED SEVERAL YRS AGO-ONG.
  8. MORPHINE [Concomitant]
     Indication: JOINT PROSTHESIS USER
     Dosage: STARTED SEVERAL YRS AGO-ONG.
  9. MORPHINE [Concomitant]
     Dosage: STARTED SEVERAL YRS AGO-ONG.

REACTIONS (1)
  - CYTOLYTIC HEPATITIS [None]
